FAERS Safety Report 23991195 (Version 1)
Quarter: 2024Q2

REPORT INFORMATION
  Report Type: Spontaneous
  Country: CN (occurrence: CN)
  Receive Date: 20240619
  Receipt Date: 20240619
  Transmission Date: 20240715
  Serious: Yes (Other)
  Sender: FDA-Public Use
  Company Number: CN-PFIZER INC-PV202400079647

PATIENT
  Age: 4 Year
  Sex: Female
  Weight: 15.5 kg

DRUGS (3)
  1. CEFOPERAZONE SODIUM\SULBACTAM SODIUM [Suspect]
     Active Substance: CEFOPERAZONE SODIUM\SULBACTAM SODIUM
     Indication: Anti-infective therapy
     Dosage: 1.24 G, 3X/DAY
     Route: 041
     Dates: start: 20240501, end: 20240524
  2. TIGECYCLINE [Suspect]
     Active Substance: TIGECYCLINE
     Indication: Anti-infective therapy
     Dosage: 3 MG, 2X/DAY
     Route: 037
     Dates: start: 20240513, end: 20240524
  3. TIGECYCLINE [Suspect]
     Active Substance: TIGECYCLINE
     Dosage: 18.6 MG, 2X/DAY
     Route: 041
     Dates: start: 20240524, end: 20240524

REACTIONS (1)
  - Blood bilirubin increased [Unknown]

NARRATIVE: CASE EVENT DATE: 20240524
